FAERS Safety Report 4435763-2 (Version None)
Quarter: 2004Q3

REPORT INFORMATION
  Report Type: 
  Country: None (occurrence: None)
  Receive Date: 20040826
  Receipt Date: 20040813
  Transmission Date: 20050211
  Serious: Yes (Other)
  Sender: FDA-Public Use
  Company Number: 2004049375

PATIENT
  Age: 49 Year
  Sex: Male

DRUGS (2)
  1. NEURONTIN [Suspect]
     Indication: PARAESTHESIA
  2. LEVETIRACETAM [Concomitant]

REACTIONS (3)
  - CHEST PAIN [None]
  - DYSPNOEA [None]
  - VENTRICULAR HYPERTROPHY [None]
